FAERS Safety Report 23923650 (Version 1)
Quarter: 2024Q2

REPORT INFORMATION
  Report Type: Spontaneous
  Country: CZ (occurrence: CZ)
  Receive Date: 20240531
  Receipt Date: 20240531
  Transmission Date: 20240716
  Serious: Yes (Other)
  Sender: FDA-Public Use
  Company Number: CZ-SUN PHARMACEUTICAL INDUSTRIES LTD-2024R1-448925

PATIENT
  Age: 72 Year
  Sex: Female

DRUGS (1)
  1. IBANDRONIC ACID [Suspect]
     Active Substance: IBANDRONIC ACID
     Indication: Osteoporosis
     Dosage: 3 MILLIGRAM
     Route: 042
     Dates: start: 201912

REACTIONS (5)
  - Conjunctivitis [Recovered/Resolved]
  - Uveitis [Recovered/Resolved]
  - Scleritis [Recovered/Resolved]
  - Eye pain [Recovered/Resolved]
  - Corneal opacity [Recovered/Resolved]
